FAERS Safety Report 24982106 (Version 1)
Quarter: 2025Q1

REPORT INFORMATION
  Report Type: Report from Study
  Country: PH (occurrence: PH)
  Receive Date: 20250218
  Receipt Date: 20250218
  Transmission Date: 20250409
  Serious: Yes (Death)
  Sender: OTSUKA
  Company Number: PH-MMM-Otsuka-FXDV5W03

PATIENT

DRUGS (2)
  1. TOLVAPTAN [Suspect]
     Active Substance: TOLVAPTAN
     Indication: Hepatic cirrhosis
     Dosage: 0.5 DF, QD (15 MG HALF TABLET A DAY)
     Route: 065
  2. TOLVAPTAN [Suspect]
     Active Substance: TOLVAPTAN
     Dosage: 0.25 DF, QD (15MG 1/4 TABLET ONCE A DAY)
     Route: 048
     Dates: start: 2023, end: 20250120

REACTIONS (3)
  - Organ failure [Fatal]
  - Wrong technique in product usage process [Unknown]
  - Product use in unapproved indication [Unknown]

NARRATIVE: CASE EVENT DATE: 20230101
